FAERS Safety Report 10985637 (Version 1)
Quarter: 2015Q2

REPORT INFORMATION
  Report Type: Spontaneous
  Country: US (occurrence: None)
  Receive Date: 20150403
  Receipt Date: 20150403
  Transmission Date: 20150821
  Serious: Yes (Other)
  Sender: FDA-Public Use
  Company Number: None

PATIENT
  Age: 73 Year
  Sex: Male
  Weight: 108.86 kg

DRUGS (1)
  1. INSULIN [Suspect]
     Active Substance: INSULIN HUMAN
     Indication: DIABETES MELLITUS INADEQUATE CONTROL
     Route: 058

REACTIONS (2)
  - Wrong technique in drug usage process [None]
  - Medical device complication [None]

NARRATIVE: CASE EVENT DATE: 20150401
